FAERS Safety Report 4635393-3 (Version None)
Quarter: 2005Q2

REPORT INFORMATION
  Report Type: 
  Country: None (occurrence: None)
  Receive Date: 20050411
  Receipt Date: 20050328
  Transmission Date: 20051028
  Serious: Yes (Hospitalization)
  Sender: FDA-Public Use
  Company Number: 2005050867

PATIENT
  Age: 62 Year
  Sex: Male

DRUGS (2)
  1. XANAX [Suspect]
     Indication: ILL-DEFINED DISORDER
  2. ETHANOL (ETHANOL) [Suspect]
     Indication: ILL-DEFINED DISORDER

REACTIONS (8)
  - ALCOHOLISM [None]
  - CHRONIC OBSTRUCTIVE PULMONARY DISEASE [None]
  - METABOLIC ENCEPHALOPATHY [None]
  - OVERDOSE [None]
  - PNEUMONIA ASPIRATION [None]
  - RESPIRATORY FAILURE [None]
  - SUICIDE ATTEMPT [None]
  - TRICUSPID VALVE INCOMPETENCE [None]
